FAERS Safety Report 10337803 (Version 2)
Quarter: 2014Q3

REPORT INFORMATION
  Report Type: Spontaneous
  Country: US (occurrence: US)
  Receive Date: 20140724
  Receipt Date: 20140724
  Transmission Date: 20150326
  Serious: No
  Sender: FDA-Public Use
  Company Number: US-UNITED THERAPEUTICS-UTC-045835

PATIENT
  Age: 86 Year
  Sex: Female
  Weight: 62.41 kg

DRUGS (3)
  1. LETAIRIS [Concomitant]
     Active Substance: AMBRISENTAN
  2. REVATIO [Concomitant]
     Active Substance: SILDENAFIL CITRATE
  3. TYVASO [Suspect]
     Active Substance: TREPROSTINIL
     Dosage: 18-54 MICROGRAMS
     Dates: start: 20140115

REACTIONS (4)
  - Fatigue [Unknown]
  - Palpitations [Recovered/Resolved]
  - Dry mouth [Unknown]
  - Cardiac flutter [Unknown]

NARRATIVE: CASE EVENT DATE: 2014
